FAERS Safety Report 25817878 (Version 1)
Quarter: 2025Q3

REPORT INFORMATION
  Report Type: Spontaneous
  Country: US (occurrence: US)
  Receive Date: 20250918
  Receipt Date: 20250918
  Transmission Date: 20251020
  Serious: Yes (Congenital Anomaly)
  Sender: VERTEX
  Company Number: US-VERTEX PHARMACEUTICALS-2025-015294

PATIENT
  Sex: Male

DRUGS (1)
  1. TRIKAFTA [Suspect]
     Active Substance: ELEXACAFTOR\IVACAFTOR\TEZACAFTOR
     Indication: Cystic fibrosis
     Route: 064

REACTIONS (1)
  - Congenital vas deferens absence [Unknown]
